FAERS Safety Report 7867127-3 (Version None)
Quarter: 2011Q4

REPORT INFORMATION
  Report Type: 
  Country: None (occurrence: None)
  Receive Date: 20111028
  Receipt Date: 20111018
  Transmission Date: 20120403
  Serious: Yes (Death)
  Sender: FDA-Public Use
  Company Number: FR-SHIRE-CQT2-2011-00040

PATIENT
  Sex: Male
  Weight: 77 kg

DRUGS (5)
  1. HYDROXYUREA [Suspect]
     Indication: ESSENTIAL THROMBOCYTHAEMIA
     Dosage: 1000 MG, 1X/DAY:QD
     Route: 048
     Dates: start: 20041001, end: 20070308
  2. ASPIRIN [Suspect]
     Dosage: 75 MG, 1X/DAY:QD
     Route: 048
     Dates: start: 20050323, end: 20070308
  3. ANAGRELIDE HCL [Suspect]
     Indication: ESSENTIAL THROMBOCYTHAEMIA
     Dosage: 1.0 MG, 1X/DAY:QD
     Route: 048
     Dates: start: 20070308
  4. ASPIRIN [Suspect]
     Indication: ESSENTIAL THROMBOCYTHAEMIA
     Dosage: 100 MG, 1X/DAY:QD
     Route: 048
     Dates: start: 20040101, end: 20050323
  5. CLOPIDOGREL [Suspect]
     Indication: ESSENTIAL THROMBOCYTHAEMIA
     Dosage: 75 MG, 1X/DAY:QD
     Route: 048
     Dates: start: 20060101

REACTIONS (1)
  - DEATH [None]
